FAERS Safety Report 8156094-3 (Version None)
Quarter: 2012Q1

REPORT INFORMATION
  Report Type: 
  Country: None (occurrence: None)
  Receive Date: 20120216
  Receipt Date: 20120207
  Transmission Date: 20120608
  Serious: Yes (Hospitalization)
  Sender: FDA-Public Use
  Company Number: DSJ-2012-02445

PATIENT
  Age: 51 Year
  Sex: Female

DRUGS (2)
  1. BETAHISTINE (BETAHISTINE) (BETAHISTINE) [Concomitant]
  2. BENICAR HCT [Suspect]
     Indication: HYPERTENSION
     Dosage: 20/12.5 MG (1 IN 1 D), PER ORAL
     Route: 048
     Dates: start: 20110101

REACTIONS (4)
  - DRUG INEFFECTIVE [None]
  - DYSPNOEA [None]
  - LABYRINTHITIS [None]
  - OEDEMA PERIPHERAL [None]
